FAERS Safety Report 23703622 (Version 1)
Quarter: 2024Q2

REPORT INFORMATION
  Report Type: Spontaneous
  Country: US (occurrence: None)
  Receive Date: 20240403
  Receipt Date: 20240403
  Transmission Date: 20240716
  Serious: No
  Sender: FDA-Public Use
  Company Number: None

PATIENT
  Age: 60 Year
  Sex: Female
  Weight: 90 kg

DRUGS (8)
  1. GAVILYTE G [Suspect]
     Active Substance: POLYETHYLENE GLYCOL 3350\POTASSIUM CHLORIDE\SODIUM BICARBONATE\SODIUM CHLORIDE\SODIUM SULFATE
     Indication: Bowel preparation
     Dosage: OTHER QUANTITY : 1 1GALLON;?
     Route: 048
     Dates: start: 20240402, end: 20240402
  2. GAVILYTE G [Suspect]
     Active Substance: POLYETHYLENE GLYCOL 3350\POTASSIUM CHLORIDE\SODIUM BICARBONATE\SODIUM CHLORIDE\SODIUM SULFATE
     Indication: Colonoscopy
  3. OMEPRAZOLE [Concomitant]
  4. CELEBREX [Concomitant]
     Active Substance: CELECOXIB
  5. Atvorstatin [Concomitant]
  6. ESTRADIOL [Concomitant]
     Active Substance: ESTRADIOL
  7. VITAMIN D [Concomitant]
     Active Substance: VITAMIN D NOS
  8. FLUOXETINE [Concomitant]
     Active Substance: FLUOXETINE HYDROCHLORIDE

REACTIONS (18)
  - Drug hypersensitivity [None]
  - Dyspnoea [None]
  - Pruritus [None]
  - Paraesthesia [None]
  - Hypoaesthesia [None]
  - Hypoaesthesia [None]
  - Muscular weakness [None]
  - Nausea [None]
  - Abdominal pain upper [None]
  - Dyspepsia [None]
  - Dizziness [None]
  - Oral discomfort [None]
  - Rhinorrhoea [None]
  - Ear pruritus [None]
  - Ear discomfort [None]
  - Lacrimation increased [None]
  - Asthenia [None]
  - Headache [None]

NARRATIVE: CASE EVENT DATE: 20240402
